FAERS Safety Report 12304743 (Version 1)
Quarter: 2016Q2

REPORT INFORMATION
  Report Type: Spontaneous
  Country: US (occurrence: None)
  Receive Date: 20160425
  Receipt Date: 20160425
  Transmission Date: 20160815
  Serious: Yes (Other)
  Sender: FDA-Public Use
  Company Number: None

PATIENT
  Age: 86 Year
  Sex: Male
  Weight: 77.11 kg

DRUGS (2)
  1. TC 99 SESTAMIBI [Suspect]
     Active Substance: TECHNETIUM TC-99M SESTAMIBI
     Indication: CORONARY ARTERY DISEASE
     Dosage: REST DOSE 9.9 MCI STRESS DOSE 30.9MCI IV
     Route: 042
     Dates: start: 20150706
  2. LEXISCAN [Suspect]
     Active Substance: REGADENOSON
     Indication: CORONARY ARTERY DISEASE
     Route: 042
     Dates: start: 20150706

REACTIONS (3)
  - Paraesthesia [None]
  - Condition aggravated [None]
  - Limb discomfort [None]

NARRATIVE: CASE EVENT DATE: 20150706
